FAERS Safety Report 8617297-4 (Version None)
Quarter: 2012Q3

REPORT INFORMATION
  Report Type: 
  Country: None (occurrence: None)
  Receive Date: 20120823
  Receipt Date: 20120814
  Transmission Date: 20120928
  Serious: Yes (Hospitalization)
  Sender: FDA-Public Use
  Company Number: IT-ASTRAZENECA-2012SE57460

PATIENT
  Sex: Male

DRUGS (3)
  1. NORVASC [Concomitant]
     Indication: HYPERTENSION
     Dosage: 5 MG TABLETS
     Route: 048
     Dates: start: 20120710
  2. CRESTOR [Suspect]
     Indication: DYSLIPIDAEMIA
     Route: 048
     Dates: start: 20110101, end: 20120725
  3. ESAPENT [Concomitant]

REACTIONS (2)
  - RENAL FAILURE ACUTE [None]
  - RHABDOMYOLYSIS [None]
